FAERS Safety Report 6888586-9 (Version None)
Quarter: 2010Q3

REPORT INFORMATION
  Report Type: 
  Country: None (occurrence: None)
  Receive Date: 20100730
  Receipt Date: 20061013
  Transmission Date: 20110219
  Serious: No
  Sender: FDA-Public Use
  Company Number: US-PFIZER INC-2006127032

PATIENT
  Sex: Female
  Weight: 55.79 kg

DRUGS (4)
  1. SINEQUAN [Suspect]
     Indication: CYSTITIS INTERSTITIAL
  2. DOXEPIN HCL [Suspect]
     Indication: CYSTITIS INTERSTITIAL
  3. VITAMINS [Concomitant]
  4. FISH OIL [Concomitant]

REACTIONS (1)
  - RASH [None]
